FAERS Safety Report 7911262-8 (Version None)
Quarter: 2011Q4

REPORT INFORMATION
  Report Type: 
  Country: None (occurrence: None)
  Receive Date: 20111114
  Receipt Date: 20111108
  Transmission Date: 20120403
  Serious: Yes (Other)
  Sender: FDA-Public Use
  Company Number: CA-SHIRE-ALL1-2011-04356

PATIENT
  Age: 10 Year
  Sex: Male

DRUGS (1)
  1. VYVANSE [Suspect]
     Indication: ATTENTION DEFICIT/HYPERACTIVITY DISORDER
     Dosage: 20 MG, UNKNOWN
     Route: 048
     Dates: start: 20110101

REACTIONS (2)
  - DEPRESSION [None]
  - SUICIDAL IDEATION [None]
